FAERS Safety Report 10977211 (Version 3)
Quarter: 2015Q2

REPORT INFORMATION
  Report Type: Spontaneous
  Country: JP (occurrence: None)
  Receive Date: 20150330
  Receipt Date: 20150511
  Transmission Date: 20150821
  Serious: Yes (Hospitalization)
  Sender: FDA-Public Use
  Company Number: 2015FE00983

PATIENT
  Age: 88 Year
  Sex: Male
  Weight: 63 kg

DRUGS (7)
  1. DECADRON [Concomitant]
     Active Substance: DEXAMETHASONE
  2. PURSENNID (SENNA ALEXANDRINA LEAF) [Concomitant]
  3. AMLODIPINE [Concomitant]
     Active Substance: AMLODIPINE BESYLATE
  4. LANSOPRAZOLE (LANSOPRAZOLE) [Concomitant]
     Active Substance: LANSOPRAZOLE
  5. MAGMITT (MAGNESIUM OXIDE) [Concomitant]
     Active Substance: MAGNESIUM OXIDE
  6. GONAX [Suspect]
     Active Substance: DEGARELIX
     Indication: PROSTATE CANCER
     Route: 058
     Dates: start: 20140812, end: 20150303
  7. ZOMETA [Suspect]
     Active Substance: ZOLEDRONIC ACID
     Indication: METASTASES TO BONE
     Route: 042
     Dates: start: 20140715, end: 20150303

REACTIONS (2)
  - Stress cardiomyopathy [None]
  - Interstitial lung disease [None]

NARRATIVE: CASE EVENT DATE: 20150310
